FAERS Safety Report 18423568 (Version 1)
Quarter: 2020Q4

REPORT INFORMATION
  Report Type: Spontaneous
  Country: BR (occurrence: BR)
  Receive Date: 20201023
  Receipt Date: 20201023
  Transmission Date: 20210114
  Serious: Yes (Other)
  Sender: FDA-Public Use
  Company Number: NVSC2020BR265500

PATIENT
  Sex: Female

DRUGS (2)
  1. COSENTYX [Suspect]
     Active Substance: SECUKINUMAB
     Indication: JUVENILE IDIOPATHIC ARTHRITIS
     Dosage: 150 MG, UNKNOWN
     Route: 065
     Dates: start: 20200918
  2. COSENTYX [Suspect]
     Active Substance: SECUKINUMAB
     Dosage: INDUCTION DOSE 1 WEEK 2ND DOSE 150 MG/ML, QW
     Route: 058
     Dates: start: 20200922

REACTIONS (6)
  - Nausea [Recovering/Resolving]
  - Product use in unapproved indication [Unknown]
  - Tachycardia [Recovering/Resolving]
  - Dyspnoea [Recovering/Resolving]
  - Fear [Unknown]
  - Product use issue [Unknown]
